FAERS Safety Report 8207074-0 (Version None)
Quarter: 2012Q1

REPORT INFORMATION
  Report Type: 
  Country: None (occurrence: None)
  Receive Date: 20120314
  Receipt Date: 20120305
  Transmission Date: 20120608
  Serious: Yes (Hospitalization)
  Sender: FDA-Public Use
  Company Number: US-BAYER-2012-022465

PATIENT
  Age: 19 Year

DRUGS (3)
  1. IRON [Concomitant]
  2. YASMIN [Suspect]
     Route: 048
  3. YAZ [Suspect]
     Route: 048

REACTIONS (2)
  - PULMONARY INFARCTION [None]
  - PULMONARY EMBOLISM [None]
